FAERS Safety Report 7621399-9 (Version None)
Quarter: 2011Q3

REPORT INFORMATION
  Report Type: 
  Country: None (occurrence: None)
  Receive Date: 20110719
  Receipt Date: 20110712
  Transmission Date: 20111222
  Serious: Yes (Hospitalization, Congenital Anomaly, Other)
  Sender: FDA-Public Use
  Company Number: US-PFIZER INC-2011158620

PATIENT
  Sex: Female
  Weight: 2 kg

DRUGS (9)
  1. EFFEXOR XR [Suspect]
     Dosage: 150 MG,
     Route: 064
     Dates: start: 20040409
  2. TERBUTALINE [Concomitant]
     Dosage: 2.5 MG
     Route: 064
     Dates: start: 20090531
  3. AZITHROMYCIN [Concomitant]
     Dosage: 500 MG,
     Route: 064
     Dates: start: 20090531
  4. FERROUS SULFATE [Concomitant]
     Dosage: 325 MG,
     Route: 064
     Dates: start: 20090531
  5. KETOROLAC [Concomitant]
     Dosage: 10 MG, 4X/DAY
     Route: 064
     Dates: start: 20090705
  6. EFFEXOR XR [Suspect]
     Indication: DEPRESSION
     Dosage: 75 MG
     Route: 064
     Dates: start: 20031219
  7. LORATADINE [Concomitant]
     Dosage: 10 MG,
     Route: 064
     Dates: start: 20090531
  8. ACETAMINOPHEN AND HYDROCODONE BITARTRATE [Concomitant]
     Dosage: 5MG/500MG EVERY 4 HOURS
     Route: 064
     Dates: start: 20090705
  9. BENZONATATE [Concomitant]
     Dosage: 100 MG,
     Route: 064
     Dates: start: 20090531

REACTIONS (3)
  - FALLOT'S TETRALOGY [None]
  - ATRIAL SEPTAL DEFECT [None]
  - MATERNAL EXPOSURE DURING PREGNANCY [None]
